FAERS Safety Report 10028578 (Version 3)
Quarter: 2014Q2

REPORT INFORMATION
  Report Type: Spontaneous
  Country: US (occurrence: US)
  Receive Date: 20140321
  Receipt Date: 20140625
  Transmission Date: 20141212
  Serious: Yes (Hospitalization)
  Sender: FDA-Public Use
  Company Number: US-GLAXOSMITHKLINE-A1058568A

PATIENT
  Age: 60 Year
  Sex: Female
  Weight: 63 kg

DRUGS (3)
  1. FLOLAN [Suspect]
     Indication: COR PULMONALE CHRONIC
     Dosage: 28.5NGKM CONTINUOUS
     Route: 042
     Dates: start: 20010503
  2. COUMADIN [Concomitant]
  3. REVATIO [Concomitant]

REACTIONS (3)
  - Catheter site infection [Recovered/Resolved]
  - Device related infection [Unknown]
  - Central venous catheterisation [Recovered/Resolved]
